FAERS Safety Report 11944186 (Version 1)
Quarter: 2016Q1

REPORT INFORMATION
  Report Type: Spontaneous
  Country: US (occurrence: US)
  Receive Date: 20160125
  Receipt Date: 20160125
  Transmission Date: 20160526
  Serious: No
  Sender: FDA-Public Use
  Company Number: US-UNITED THERAPEUTICS-UNT-2015-014288

PATIENT
  Sex: Female
  Weight: 56.69 kg

DRUGS (1)
  1. TYVASO [Suspect]
     Active Substance: TREPROSTINIL
     Indication: PULMONARY ARTERIAL HYPERTENSION
     Dosage: 54 ?G, QID
     Dates: start: 201407

REACTIONS (3)
  - Fluid overload [Unknown]
  - Localised oedema [Unknown]
  - Weight increased [Unknown]

NARRATIVE: CASE EVENT DATE: 201511
